FAERS Safety Report 24631229 (Version 4)
Quarter: 2025Q3

REPORT INFORMATION
  Report Type: Report from Study
  Country: JP (occurrence: JP)
  Receive Date: 20241118
  Receipt Date: 20250718
  Transmission Date: 20251021
  Serious: Yes (Death)
  Sender: EISAI
  Company Number: JP-Eisai-EC-2024-179003

PATIENT
  Age: 78 Year
  Sex: Male
  Weight: 40 kg

DRUGS (6)
  1. LEQEMBI [Suspect]
     Active Substance: LECANEMAB-IRMB
     Indication: Dementia Alzheimer^s type
     Dates: start: 20240227
  2. LEQEMBI [Suspect]
     Active Substance: LECANEMAB-IRMB
     Dosage: DOSE (4.1ML)
     Dates: start: 20240924, end: 20241008
  3. LEQEMBI [Suspect]
     Active Substance: LECANEMAB-IRMB
     Dosage: DOSE  4.0ML
     Dates: start: 20241029, end: 20241029
  4. LEQEMBI [Suspect]
     Active Substance: LECANEMAB-IRMB
     Dosage: DOSE-4.1ML
     Dates: start: 20241112, end: 20241112
  5. LEQEMBI [Suspect]
     Active Substance: LECANEMAB-IRMB
     Dosage: STOPPED: //2024
     Dates: start: 20240827
  6. OLANZAPINE [Concomitant]
     Active Substance: OLANZAPINE
     Indication: Cognitive disorder

REACTIONS (1)
  - Asthenia [Fatal]

NARRATIVE: CASE EVENT DATE: 20241115
